FAERS Safety Report 21823576 (Version 4)
Quarter: 2023Q1

REPORT INFORMATION
  Report Type: Other
  Country: US (occurrence: US)
  Receive Date: 20230105
  Receipt Date: 20230330
  Transmission Date: 20230418
  Serious: No
  Sender: FDA-Public Use
  Company Number: US-DECIPHERA PHARMACEUTICALS LLC-2022US001102

PATIENT
  Sex: Female

DRUGS (1)
  1. QINLOCK [Suspect]
     Active Substance: RIPRETINIB
     Indication: Gastrointestinal stromal tumour
     Dosage: 150 MILLIGRAM, QD
     Route: 048
     Dates: start: 20221207

REACTIONS (16)
  - Sleep disorder [Unknown]
  - Nasopharyngitis [Unknown]
  - Blood cholesterol abnormal [Unknown]
  - Discomfort [Unknown]
  - Gait disturbance [Unknown]
  - Rash macular [Unknown]
  - Skin atrophy [Unknown]
  - Increased tendency to bruise [Unknown]
  - Laboratory test abnormal [Unknown]
  - Abdominal discomfort [Unknown]
  - Sinus headache [Unknown]
  - Insomnia [Unknown]
  - Asthenia [Unknown]
  - Hypertension [Unknown]
  - Fatigue [Unknown]
  - Headache [Unknown]
